FAERS Safety Report 7031531-6 (Version None)
Quarter: 2010Q4

REPORT INFORMATION
  Report Type: 
  Country: None (occurrence: None)
  Receive Date: 20101006
  Receipt Date: 20101006
  Transmission Date: 20110411
  Serious: Yes (Congenital Anomaly)
  Sender: FDA-Public Use
  Company Number: None

PATIENT
  Sex: Female

DRUGS (1)
  1. DEPAKOTE ER [Suspect]
     Indication: MOOD ALTERED
     Dates: start: 20010101, end: 20030701

REACTIONS (3)
  - ASPERGER'S DISORDER [None]
  - DEVELOPMENTAL DELAY [None]
  - MATERNAL DRUGS AFFECTING FOETUS [None]
